FAERS Safety Report 14842610 (Version 1)
Quarter: 2018Q2

REPORT INFORMATION
  Report Type: Spontaneous
  Country: BR (occurrence: BR)
  Receive Date: 20180503
  Receipt Date: 20180503
  Transmission Date: 20180711
  Serious: Yes (Other)
  Sender: FDA-Public Use
  Company Number: BR-GLAXOSMITHKLINE-BR2018GSK075586

PATIENT
  Sex: Male
  Weight: 15 kg

DRUGS (2)
  1. FILINAR [Suspect]
     Active Substance: AMBROXOL ACEFYLLINATE
     Indication: CATARRH
     Dosage: UNK
  2. AVAMYS [Suspect]
     Active Substance: FLUTICASONE FUROATE
     Indication: PRODUCT USED FOR UNKNOWN INDICATION
     Dosage: UNK

REACTIONS (4)
  - Pneumonia [Not Recovered/Not Resolved]
  - Product use issue [Recovered/Resolved]
  - Increased bronchial secretion [Not Recovered/Not Resolved]
  - Drug prescribing error [Recovered/Resolved]
